FAERS Safety Report 14009758 (Version 3)
Quarter: 2017Q4

REPORT INFORMATION
  Report Type: Report from Study
  Country: IL (occurrence: IL)
  Receive Date: 20170925
  Receipt Date: 20171128
  Transmission Date: 20180321
  Serious: Yes (Death, Hospitalization)
  Sender: FDA-Public Use
  Company Number: PHHY2017IL138415

PATIENT
  Age: 29 Year
  Sex: Female

DRUGS (2)
  1. TRAMETINIB [Suspect]
     Active Substance: TRAMETINIB
     Indication: ANAPLASTIC ASTROCYTOMA
     Dosage: UNK MG, UNK
     Route: 048
     Dates: start: 201707, end: 20170928
  2. DABRAFENIB [Suspect]
     Active Substance: DABRAFENIB
     Indication: ANAPLASTIC ASTROCYTOMA
     Dosage: UNK
     Route: 065
     Dates: start: 201707, end: 20170928

REACTIONS (6)
  - Anaplastic astrocytoma [Fatal]
  - Headache [Recovered/Resolved]
  - Radiation necrosis [Recovered/Resolved]
  - Seizure [Recovered/Resolved]
  - Malignant neoplasm progression [Fatal]
  - Central nervous system lesion [Unknown]

NARRATIVE: CASE EVENT DATE: 20170928
